FAERS Safety Report 8922713 (Version 1)
Quarter: 2012Q4

REPORT INFORMATION
  Report Type: 
  Country: SE (occurrence: SE)
  Receive Date: 20121123
  Receipt Date: 20121123
  Transmission Date: 20130627
  Serious: Yes (Hospitalization)
  Sender: FDA-Public Use
  Company Number: SE-PFIZER INC-2012290435

PATIENT
  Age: 60 Year
  Sex: Female
  Weight: 82.2 kg

DRUGS (7)
  1. GENOTROPIN [Suspect]
     Indication: PANHYPOPITUITARISM
     Dosage: 0.3 mg, 1x/day,7 injections/week
     Route: 058
     Dates: start: 20020408
  2. CORTISONE ACETATE [Concomitant]
     Indication: ACTH DECREASED
     Dosage: UNK
     Dates: start: 19831001, end: 2004
  3. AMITRIPTYLINE [Concomitant]
     Indication: SLEEP DISTURBANCE
     Dosage: UNK
     Dates: start: 19990125
  4. BROMOCRIPTINE [Concomitant]
     Indication: PITUITARY TUMOUR BENIGN
     Dosage: UNK
     Dates: start: 19860201
  5. LEVOTHYROXINE [Concomitant]
     Indication: TSH DECREASED
     Dosage: UNK
     Dates: start: 19831001
  6. LEVOTHYROXINE [Concomitant]
     Indication: PRIMARY HYPOTHYROIDISM
  7. HYDROCORTONE [Concomitant]
     Indication: ACTH DECREASED
     Dosage: UNK
     Dates: start: 2004

REACTIONS (1)
  - Syncope [Unknown]
